FAERS Safety Report 6122614-3 (Version None)
Quarter: 2009Q1

REPORT INFORMATION
  Report Type: 
  Country: None (occurrence: None)
  Receive Date: 20090316
  Receipt Date: 20090225
  Transmission Date: 20090719
  Serious: Yes (Death)
  Sender: FDA-Public Use
  Company Number: APP200900099

PATIENT
  Age: 56 Year
  Sex: Male

DRUGS (11)
  1. DEXAMETHASONE SODIUM PHOSPHATE [Suspect]
     Indication: PROSTATE CANCER
     Dosage: 16 MG, 1 IN 1 D
  2. THALIDOMIDE [Suspect]
     Indication: PROSTATE CANCER
     Dosage: 100 MG, 1 IN 1 D
  3. ERTHROPOIETIN (ERYTHROPOIETIN) [Suspect]
     Indication: PROSTATE CANCER
     Dosage: 10 MU 3 TIMES A WEEK
  4. MITOXANTRONE (MITOXANTRONE) [Concomitant]
  5. PREDNISONE TAB [Concomitant]
  6. ESTRAMUSTINE (ESTRAMUSTINE) [Concomitant]
  7. PACLITAXEL [Concomitant]
  8. CARBOPLATIN [Concomitant]
  9. ETOPOSIDE [Concomitant]
  10. MORPHINE [Concomitant]
  11. ZOLEDRONIC ACID [Concomitant]

REACTIONS (3)
  - DISSEMINATED INTRAVASCULAR COAGULATION [None]
  - NERVOUS SYSTEM DISORDER [None]
  - RENAL IMPAIRMENT [None]
